FAERS Safety Report 17108766 (Version 1)
Quarter: 2019Q4

REPORT INFORMATION
  Report Type: Spontaneous
  Country: FR (occurrence: FR)
  Receive Date: 20191204
  Receipt Date: 20191204
  Transmission Date: 20200122
  Serious: Yes (Hospitalization, Other)
  Sender: FDA-Public Use
  Company Number: FR-SA-200214984FR

PATIENT
  Age: 56 Year
  Sex: Male

DRUGS (10)
  1. STILNOX [Suspect]
     Active Substance: ZOLPIDEM TARTRATE
     Dosage: UNK
     Route: 048
     Dates: start: 20021108
  2. RANITIDINE HYDROCHLORIDE. [Suspect]
     Active Substance: RANITIDINE HYDROCHLORIDE
     Dosage: UNK
     Dates: start: 20021105, end: 20021108
  3. NAROPEINE [Suspect]
     Active Substance: ROPIVACAINE HYDROCHLORIDE
     Dosage: UNK
     Route: 008
     Dates: start: 20021105, end: 20021108
  4. PERFALGAN [Concomitant]
     Active Substance: ACETAMINOPHEN
     Dosage: UNK
     Dates: start: 200211
  5. METRONIDAZOLE. [Concomitant]
     Active Substance: METRONIDAZOLE
     Dosage: UNK
     Dates: start: 200211
  6. CLAMOXYL [AMOXICILLIN] [Concomitant]
     Active Substance: AMOXICILLIN
     Dosage: UNK
     Dates: start: 200211
  7. PROFENID [Suspect]
     Active Substance: KETOPROFEN
     Dosage: UNK
  8. ZOPICLONE [Suspect]
     Active Substance: ZOPICLONE
     Indication: INSOMNIA
     Dosage: DOSE UNIT: 7.5 MG
     Route: 048
     Dates: start: 20021108
  9. GENTA [Concomitant]
     Dosage: UNK
     Dates: start: 200211
  10. PRIMPERAN [Concomitant]
     Active Substance: METOCLOPRAMIDE HYDROCHLORIDE
     Dosage: UNK
     Dates: start: 200211

REACTIONS (3)
  - Vomiting [Recovered/Resolved]
  - Amaurosis fugax [Recovered/Resolved]
  - Disorientation [Recovered/Resolved]

NARRATIVE: CASE EVENT DATE: 20021109
